FAERS Safety Report 6771540-5 (Version None)
Quarter: 2010Q2

REPORT INFORMATION
  Report Type: 
  Country: None (occurrence: None)
  Receive Date: 20100616
  Receipt Date: 20100608
  Transmission Date: 20101027
  Serious: Yes (Other)
  Sender: FDA-Public Use
  Company Number: DE-ROCHE-706207

PATIENT
  Age: 45 Year
  Sex: Female
  Weight: 66 kg

DRUGS (4)
  1. HERCEPTIN [Suspect]
     Indication: BREAST CANCER
     Route: 042
     Dates: start: 20090506, end: 20091023
  2. HERCEPTIN [Suspect]
     Route: 042
     Dates: start: 20100218
  3. EPIRUBICIN [Suspect]
     Indication: BREAST CANCER
     Route: 042
     Dates: start: 20090211, end: 20090415
  4. TAXOL [Concomitant]
     Indication: BREAST CANCER
     Route: 042
     Dates: start: 20090506, end: 20090618

REACTIONS (2)
  - EJECTION FRACTION DECREASED [None]
  - METASTASES TO BONE [None]
